FAERS Safety Report 7512714-5 (Version None)
Quarter: 2011Q2

REPORT INFORMATION
  Report Type: 
  Country: None (occurrence: None)
  Receive Date: 20110525
  Receipt Date: 20110525
  Transmission Date: 20111010
  Serious: Yes (Life-Threatening)
  Sender: FDA-Public Use
  Company Number: None

PATIENT
  Age: 55 Year
  Sex: Male
  Weight: 94 kg

DRUGS (3)
  1. DAPTOMYCIN [Suspect]
     Indication: PSEUDOMONAS INFECTION
     Dosage: 650 MG EVERY DAY IV
     Route: 042
     Dates: start: 20110401, end: 20110404
  2. DAPTOMYCIN [Suspect]
     Indication: OSTEOMYELITIS
     Dosage: 650 MG EVERY DAY IV
     Route: 042
     Dates: start: 20110401, end: 20110404
  3. DAPTOMYCIN [Suspect]
     Indication: STAPHYLOCOCCAL INFECTION
     Dosage: 650 MG EVERY DAY IV
     Route: 042
     Dates: start: 20110401, end: 20110404

REACTIONS (1)
  - EOSINOPHILIC PNEUMONIA [None]
